FAERS Safety Report 25173291 (Version 1)
Quarter: 2025Q2

REPORT INFORMATION
  Report Type: Spontaneous
  Country: US (occurrence: US)
  Receive Date: 20250408
  Receipt Date: 20250408
  Transmission Date: 20250716
  Serious: Yes (Hospitalization, Other)
  Sender: EXELA PHARMA SCIENCES
  Company Number: US-EXELAPHARMA-2025EXLA00035

PATIENT
  Age: 58 Year
  Sex: Female

DRUGS (9)
  1. VERAPAMIL HYDROCHLORIDE [Suspect]
     Active Substance: VERAPAMIL HYDROCHLORIDE
     Indication: Migraine prophylaxis
     Dosage: TWICE A DAY
  2. VERAPAMIL HYDROCHLORIDE [Suspect]
     Active Substance: VERAPAMIL HYDROCHLORIDE
     Indication: Hypertension
  3. PAXLOVID [Suspect]
     Active Substance: NIRMATRELVIR\RITONAVIR
     Indication: COVID-19 treatment
  4. SPIRONOLACTONE [Concomitant]
     Active Substance: SPIRONOLACTONE
  5. FUROSEMIDE [Concomitant]
     Active Substance: FUROSEMIDE
  6. LACTULOSE [Concomitant]
     Active Substance: LACTULOSE
  7. RIFAXIMIN [Concomitant]
     Active Substance: RIFAXIMIN
  8. METFORMIN [Concomitant]
     Active Substance: METFORMIN HYDROCHLORIDE
  9. Humulin R U-500 Insulin [Concomitant]

REACTIONS (11)
  - Peripheral swelling [Unknown]
  - Somnolence [Unknown]
  - Dyspnoea [Unknown]
  - Drug interaction [Unknown]
  - Atrioventricular block complete [Recovered/Resolved]
  - Toxicity to various agents [Recovered/Resolved]
  - Bundle branch block right [Recovered/Resolved]
  - Bradycardia [Recovered/Resolved]
  - Hypotension [Recovered/Resolved]
  - Wheezing [Unknown]
  - Nausea [Unknown]
